FAERS Safety Report 9026580 (Version 1)
Quarter: 2013Q1

REPORT INFORMATION
  Report Type: Spontaneous
  Country: MX (occurrence: MX)
  Receive Date: 20130123
  Receipt Date: 20130123
  Transmission Date: 20140127
  Serious: Yes (Other)
  Sender: FDA-Public Use
  Company Number: PHHY2013MX004862

PATIENT
  Age: 57 Year
  Sex: Female

DRUGS (2)
  1. CO-DIOVAN [Suspect]
     Indication: HYPERTENSION
     Dosage: UNK (VALSARTAN 160MG AND HYDROCHLOROTHIAZIDE 12.5MG) DAILY
     Route: 048
     Dates: start: 201201, end: 201203
  2. GALVUS MET [Suspect]
     Indication: DIABETES MELLITUS
     Dosage: 2 DF (METFORMIN 850MG AND VILDAGLIPTIN 50MG) DAILY
     Dates: start: 201106

REACTIONS (2)
  - Renal disorder [Not Recovered/Not Resolved]
  - Blood cholesterol increased [Not Recovered/Not Resolved]
